FAERS Safety Report 4372811-2 (Version None)
Quarter: 2004Q2

REPORT INFORMATION
  Report Type: 
  Country: None (occurrence: None)
  Receive Date: 20040602
  Receipt Date: 20040422
  Transmission Date: 20050107
  Serious: No
  Sender: FDA-Public Use
  Company Number: 200417708BWH

PATIENT
  Age: 67 Year
  Sex: Male
  Weight: 115.6672 kg

DRUGS (7)
  1. LEVITRA [Suspect]
     Indication: ERECTILE DYSFUNCTION
     Dosage: 10 MG , TOTAL DAILY, ORAL
     Route: 048
     Dates: start: 20040415
  2. LEVITRA [Suspect]
     Indication: ERECTILE DYSFUNCTION
     Dosage: 10 MG , TOTAL DAILY, ORAL
     Route: 048
     Dates: start: 20040420
  3. NIASPAN [Concomitant]
  4. ASPIRIN [Concomitant]
  5. VERAPAMIL [Concomitant]
  6. DIOVAN [Concomitant]
  7. CALCIUM [Concomitant]

REACTIONS (2)
  - DIARRHOEA [None]
  - STOMACH DISCOMFORT [None]
